FAERS Safety Report 8351523-4 (Version None)
Quarter: 2012Q2

REPORT INFORMATION
  Report Type: 
  Country: None (occurrence: None)
  Receive Date: 20120511
  Receipt Date: 20120507
  Transmission Date: 20120825
  Serious: Yes (Death, Other)
  Sender: FDA-Public Use
  Company Number: US-AMGEN-USASP2012029222

PATIENT
  Sex: Male

DRUGS (3)
  1. XGEVA [Suspect]
     Indication: PROSTATE CANCER
  2. CALCIUM [Concomitant]
  3. ENZYME INHIBITORS [Concomitant]

REACTIONS (3)
  - CARDIAC DISORDER [None]
  - DEATH [None]
  - HYPOCALCAEMIA [None]
